FAERS Safety Report 7342878-8 (Version None)
Quarter: 2011Q1

REPORT INFORMATION
  Report Type: 
  Country: None (occurrence: None)
  Receive Date: 20110310
  Receipt Date: 20110303
  Transmission Date: 20110831
  Serious: Yes (Hospitalization)
  Sender: FDA-Public Use
  Company Number: DE-NOVOPROD-324397

PATIENT
  Sex: Female

DRUGS (2)
  1. METFORMIN [Concomitant]
     Indication: DIABETES MELLITUS
     Dosage: UNK
     Dates: start: 20101101
  2. VICTOZA [Suspect]
     Indication: DIABETES MELLITUS
     Dosage: UNK
     Dates: start: 20101101, end: 20110101

REACTIONS (3)
  - TRANSAMINASES INCREASED [None]
  - NAUSEA [None]
  - ABDOMINAL PAIN [None]
